FAERS Safety Report 25723712 (Version 1)
Quarter: 2025Q3

REPORT INFORMATION
  Report Type: Spontaneous
  Country: EU (occurrence: EU)
  Receive Date: 20250825
  Receipt Date: 20250825
  Transmission Date: 20251021
  Serious: Yes (Other)
  Sender: NOVARTIS
  Company Number: None

PATIENT
  Age: 53 Year
  Sex: Male
  Weight: 80 kg

DRUGS (1)
  1. LEQVIO [Suspect]
     Active Substance: INCLISIRAN SODIUM
     Indication: Type IIa hyperlipidaemia
     Route: 058
     Dates: start: 20250502, end: 20250802

REACTIONS (3)
  - Asthenia [Recovering/Resolving]
  - Tongue pruritus [Recovering/Resolving]
  - Paraesthesia oral [Recovering/Resolving]

NARRATIVE: CASE EVENT DATE: 20250514
